FAERS Safety Report 20608356 (Version 3)
Quarter: 2023Q1

REPORT INFORMATION
  Report Type: Spontaneous
  Country: US (occurrence: US)
  Receive Date: 20220317
  Receipt Date: 20230308
  Transmission Date: 20230417
  Serious: Yes (Other)
  Sender: FDA-Public Use
  Company Number: US-PFIZER INC-202200412346

PATIENT
  Age: 75 Year
  Sex: Female

DRUGS (1)
  1. PREMARIN [Suspect]
     Active Substance: ESTROGENS, CONJUGATED
     Dosage: UNK

REACTIONS (10)
  - Shock [Unknown]
  - Head injury [Unknown]
  - Crying [Unknown]
  - Fatigue [Unknown]
  - Stress [Unknown]
  - Concussion [Recovering/Resolving]
  - Ligament sprain [Recovering/Resolving]
  - Limb injury [Recovering/Resolving]
  - Feeling abnormal [Recovering/Resolving]
  - Fear [Unknown]

NARRATIVE: CASE EVENT DATE: 20220101
